FAERS Safety Report 26015347 (Version 1)
Quarter: 2025Q4

REPORT INFORMATION
  Report Type: Spontaneous
  Country: US (occurrence: US)
  Receive Date: 20251109
  Receipt Date: 20251109
  Transmission Date: 20260118
  Serious: No
  Sender: SANOFI AVENTIS
  Company Number: US-SA-2025SA327320

PATIENT
  Age: 70 Year
  Sex: Male
  Weight: 70.31 kg

DRUGS (1)
  1. DUPIXENT [Suspect]
     Active Substance: DUPILUMAB
     Indication: Dermatitis atopic
     Dosage: 300 MG, QOW
     Route: 050
     Dates: start: 2025

REACTIONS (2)
  - Sleep disorder due to a general medical condition [Unknown]
  - Pruritus [Unknown]

NARRATIVE: CASE EVENT DATE: 20251103
